FAERS Safety Report 4325410-2 (Version None)
Quarter: 2004Q1

REPORT INFORMATION
  Report Type: 
  Country: None (occurrence: None)
  Receive Date: 20040324
  Receipt Date: 20040312
  Transmission Date: 20041129
  Serious: Yes (Death)
  Sender: FDA-Public Use
  Company Number: US-JNJFOC-20040303221

PATIENT
  Age: 60 Year
  Sex: Female

DRUGS (10)
  1. INFLIXIMAB (INFLIXIMAB, RECOMBINANT) LYOPHILIZED POWDER [Suspect]
     Indication: RHEUMATOID ARTHRITIS
     Dosage: INTRAVENOUS
     Route: 042
     Dates: start: 20000307
  2. PREDNISONE [Concomitant]
  3. PREMPRO 14/14 [Concomitant]
  4. ATENOLOL [Concomitant]
  5. ASACOL [Concomitant]
  6. ASPIRIN [Concomitant]
  7. AMARYL [Concomitant]
  8. FOLIC ACID [Concomitant]
  9. PURINETHOL [Concomitant]
  10. GLUCOPHAGE [Concomitant]

REACTIONS (2)
  - PANCREATIC PSEUDOCYST [None]
  - PANCREATITIS [None]
